FAERS Safety Report 12299195 (Version 1)
Quarter: 2016Q2

REPORT INFORMATION
  Report Type: Spontaneous
  Country: US (occurrence: None)
  Receive Date: 20160422
  Receipt Date: 20160422
  Transmission Date: 20160815
  Serious: No
  Sender: FDA-Public Use
  Company Number: None

PATIENT
  Age: 36 Year
  Sex: Female
  Weight: 60.78 kg

DRUGS (4)
  1. ROBAXIN [Suspect]
     Active Substance: METHOCARBAMOL
     Indication: MUSCLE SPASMS
     Route: 048
     Dates: start: 20160301, end: 20160309
  2. ATENOLOL. [Concomitant]
     Active Substance: ATENOLOL
  3. MELATONIN [Concomitant]
     Active Substance: MELATONIN
  4. ADDERALL [Concomitant]
     Active Substance: AMPHETAMINE ASPARTATE\AMPHETAMINE SULFATE\DEXTROAMPHETAMINE SACCHARATE\DEXTROAMPHETAMINE SULFATE

REACTIONS (4)
  - Asthenia [None]
  - Fibromyalgia [None]
  - Burning sensation [None]
  - Fatigue [None]

NARRATIVE: CASE EVENT DATE: 20160309
